FAERS Safety Report 7964486-8 (Version None)
Quarter: 2011Q4

REPORT INFORMATION
  Report Type: 
  Country: None (occurrence: None)
  Receive Date: 20111208
  Receipt Date: 20111201
  Transmission Date: 20120403
  Serious: Yes (Hospitalization)
  Sender: FDA-Public Use
  Company Number: US-B.I. PHARMACEUTICALS,INC./RIDGEFIELD-2011-BP-11711BP

PATIENT
  Sex: Female

DRUGS (10)
  1. FENTANYL-100 [Concomitant]
     Indication: PAIN
  2. NORVASC [Concomitant]
     Indication: HYPERTENSION
     Route: 048
  3. ZETIA [Concomitant]
     Indication: BLOOD CHOLESTEROL INCREASED
  4. TOVIAZ [Concomitant]
     Indication: HYPERTONIC BLADDER
  5. COZAAR [Concomitant]
     Indication: HYPERTENSION
     Route: 048
     Dates: start: 20050101
  6. MACRODANTIN [Concomitant]
     Indication: HYPERTONIC BLADDER
  7. PRADAXA [Suspect]
     Dosage: 300 MG
     Route: 048
     Dates: start: 20110509
  8. PRADAXA [Suspect]
     Indication: ATRIAL FIBRILLATION
     Dosage: 150 MG
     Route: 048
     Dates: start: 20110401, end: 20110508
  9. TIMOLOL MALEATE [Concomitant]
     Indication: GLAUCOMA
  10. SOTALOL HCL [Concomitant]
     Indication: HYPERTENSION
     Dates: start: 20110613

REACTIONS (8)
  - RED BLOOD CELL COUNT DECREASED [None]
  - CONTUSION [None]
  - DYSPEPSIA [None]
  - HEART RATE INCREASED [None]
  - SOMNOLENCE [None]
  - MELAENA [None]
  - FATIGUE [None]
  - DIARRHOEA [None]
